FAERS Safety Report 25554737 (Version 1)
Quarter: 2025Q3

REPORT INFORMATION
  Report Type: Spontaneous
  Country: US (occurrence: US)
  Receive Date: 20250715
  Receipt Date: 20250715
  Transmission Date: 20251021
  Serious: No
  Sender: BAYER HEALTHCARE PHARMACEUTICALS INC.
  Company Number: US-BAYER-2025A092142

PATIENT
  Age: 43 Year
  Sex: Female

DRUGS (7)
  1. KYLEENA [Suspect]
     Active Substance: LEVONORGESTREL
     Indication: Intrauterine contraception
     Dosage: 17.5?G/DAY
     Route: 015
     Dates: start: 201904
  2. ICATIBANT ACETATE [Concomitant]
     Active Substance: ICATIBANT ACETATE
  3. BERINERT [Concomitant]
     Active Substance: HUMAN C1-ESTERASE INHIBITOR
  4. HAEGARDA [Concomitant]
     Active Substance: HUMAN C1-ESTERASE INHIBITOR
     Dosage: 5000 UNITS, 10 ML, Q2WK
     Route: 058
  5. RUCONEST [Concomitant]
     Active Substance: CONESTAT ALFA
  6. STERILE WATER [Concomitant]
     Active Substance: WATER
  7. SALINE [Concomitant]
     Active Substance: SODIUM CHLORIDE

REACTIONS (2)
  - Genital swelling [None]
  - Weight increased [None]

NARRATIVE: CASE EVENT DATE: 20250605
